FAERS Safety Report 4581865-X (Version None)
Quarter: 2005Q1

REPORT INFORMATION
  Report Type: 
  Country: None (occurrence: None)
  Receive Date: 20050214
  Receipt Date: 20040325
  Transmission Date: 20050727
  Serious: Yes (Hospitalization, Disabling, Other)
  Sender: FDA-Public Use
  Company Number: US-GLAXOSMITHKLINE-A0504591A

PATIENT
  Age: 11 Year
  Sex: Female
  Weight: 22.5 kg

DRUGS (4)
  1. LAMICTAL [Suspect]
     Dosage: 25MG TWICE PER DAY
     Route: 048
     Dates: start: 20040128, end: 20040323
  2. DEPAKOTE [Concomitant]
  3. NEURONTIN [Concomitant]
  4. CLINDAMYCIN [Concomitant]

REACTIONS (1)
  - STEVENS-JOHNSON SYNDROME [None]
